FAERS Safety Report 7602806-4 (Version None)
Quarter: 2011Q3

REPORT INFORMATION
  Report Type: 
  Country: None (occurrence: None)
  Receive Date: 20110711
  Receipt Date: 20110711
  Transmission Date: 20111222
  Serious: Yes (Life-Threatening, Hospitalization, Other)
  Sender: FDA-Public Use
  Company Number: None

PATIENT
  Age: 45 Year
  Sex: 0
  Weight: 83.9154 kg

DRUGS (1)
  1. PROPECIA [Suspect]
     Indication: HAIR DISORDER
     Dosage: REGULAR DAILY PO
     Route: 048
     Dates: start: 20020610, end: 20050203

REACTIONS (11)
  - IMPAIRED WORK ABILITY [None]
  - CARDIOVASCULAR DISORDER [None]
  - FOOD ALLERGY [None]
  - BLOOD CORTISOL DECREASED [None]
  - ADDISON'S DISEASE [None]
  - BLOOD TESTOSTERONE DECREASED [None]
  - PARAESTHESIA [None]
  - DYSPEPSIA [None]
  - PEYRONIE'S DISEASE [None]
  - BLOOD PRESSURE ABNORMAL [None]
  - HYPOTHALAMO-PITUITARY DISORDER [None]
